FAERS Safety Report 4887152-4 (Version None)
Quarter: 2006Q1

REPORT INFORMATION
  Report Type: 
  Country: None (occurrence: None)
  Receive Date: 20060120
  Receipt Date: 20051005
  Transmission Date: 20060701
  Serious: Yes (Death, Hospitalization)
  Sender: FDA-Public Use
  Company Number: US-MERCK-0510USA04667

PATIENT
  Age: 62 Year
  Sex: Female
  Weight: 95 kg

DRUGS (9)
  1. VIOXX [Suspect]
     Indication: BACK PAIN
     Route: 048
     Dates: start: 20031101
  2. VIOXX [Suspect]
     Indication: SPINAL OPERATION
     Route: 048
     Dates: start: 20031101
  3. MOBIC [Concomitant]
     Route: 065
  4. LASIX [Concomitant]
     Route: 065
  5. NEURONTIN [Concomitant]
     Route: 065
  6. PAXIL [Concomitant]
     Route: 065
  7. ASPIRIN [Concomitant]
     Route: 065
  8. PROTONIX [Concomitant]
     Route: 065
  9. REGLAN [Concomitant]
     Route: 065

REACTIONS (14)
  - CARDIAC FAILURE CONGESTIVE [None]
  - CARDIOMEGALY [None]
  - CHEST PAIN [None]
  - DEATH [None]
  - DEPRESSION [None]
  - GALLBLADDER DISORDER [None]
  - GASTRITIS [None]
  - HEPATIC ENZYME INCREASED [None]
  - LUNG DISORDER [None]
  - PALPITATIONS [None]
  - PERICARDITIS [None]
  - PNEUMONIA [None]
  - RENAL FAILURE ACUTE [None]
  - RESPIRATORY FAILURE [None]
